FAERS Safety Report 12565276 (Version 2)
Quarter: 2021Q1

REPORT INFORMATION
  Report Type: Report from Study
  Country: US (occurrence: US)
  Receive Date: 20160718
  Receipt Date: 20210320
  Transmission Date: 20210419
  Serious: Yes (Hospitalization, Other)
  Sender: FDA-Public Use
  Company Number: US-AMGEN-USASP2016090296

PATIENT
  Age: 59 Year
  Sex: Male

DRUGS (9)
  1. ENBREL [Suspect]
     Active Substance: ETANERCEPT
     Indication: PSORIASIS
     Dosage: 25 MG, 2 TIMES/WK
     Route: 065
  2. NORCO [Concomitant]
     Active Substance: ACETAMINOPHEN\HYDROCODONE BITARTRATE
     Dosage: UNK
  3. METHOTREXATE. [Suspect]
     Active Substance: METHOTREXATE
     Indication: PRODUCT USED FOR UNKNOWN INDICATION
     Dosage: UNK
     Route: 065
  4. FOLIC ACID. [Concomitant]
     Active Substance: FOLIC ACID
     Dosage: UNK
  5. VIOXX [Concomitant]
     Active Substance: ROFECOXIB
     Dosage: UNK
  6. MOBIC [Concomitant]
     Active Substance: MELOXICAM
     Dosage: UNK
  7. PREVACID [Concomitant]
     Active Substance: LANSOPRAZOLE
     Dosage: UNK
  8. ENBREL [Suspect]
     Active Substance: ETANERCEPT
     Indication: PSORIATIC ARTHROPATHY
     Dosage: 50 MILLIGRAM
     Route: 065
     Dates: start: 2002
  9. ENBREL [Suspect]
     Active Substance: ETANERCEPT
     Dosage: 25 MILLIGRAM, QWK
     Route: 065

REACTIONS (20)
  - Tooth infection [Recovered/Resolved]
  - Migraine [Recovered/Resolved]
  - Decreased immune responsiveness [Unknown]
  - Staphylococcal infection [Recovered/Resolved]
  - Illness [Unknown]
  - Tooth disorder [Unknown]
  - Visual impairment [Unknown]
  - Psoriasis [Unknown]
  - Paraesthesia [Not Recovered/Not Resolved]
  - Fear of disease [Unknown]
  - Pneumonia [Unknown]
  - Syncope [Not Recovered/Not Resolved]
  - Product storage error [Unknown]
  - Arthrodesis [Unknown]
  - Infection [Unknown]
  - Nervous system disorder [Unknown]
  - Sinusitis [Unknown]
  - Blood parathyroid hormone abnormal [Unknown]
  - Nasopharyngitis [Unknown]
  - Ear infection [Recovered/Resolved]

NARRATIVE: CASE EVENT DATE: 2015
